FAERS Safety Report 21800570 (Version 1)
Quarter: 2022Q4

REPORT INFORMATION
  Report Type: Spontaneous
  Country: US (occurrence: None)
  Receive Date: 20221229
  Receipt Date: 20221229
  Transmission Date: 20230113
  Serious: Yes (Other)
  Sender: FDA-Public Use
  Company Number: None

PATIENT
  Age: 57 Year
  Sex: Female
  Weight: 72.9 kg

DRUGS (1)
  1. CETACAINE ANESTHETIC [Suspect]
     Active Substance: BENZOCAINE\BUTAMBEN\TETRACAINE HYDROCHLORIDE
     Indication: Tooth disorder
     Dates: start: 20221228, end: 20221228

REACTIONS (7)
  - Hypoaesthesia oral [None]
  - Swollen tongue [None]
  - Productive cough [None]
  - Pharyngeal swelling [None]
  - Anxiety [None]
  - Dysphonia [None]
  - Dyspnoea [None]

NARRATIVE: CASE EVENT DATE: 20221228
